FAERS Safety Report 4309488-8 (Version None)
Quarter: 2004Q1

REPORT INFORMATION
  Report Type: 
  Country: None (occurrence: None)
  Receive Date: 20040227
  Receipt Date: 20040218
  Transmission Date: 20041129
  Serious: Yes (Other)
  Sender: FDA-Public Use
  Company Number: PHRM2004FR00950

PATIENT
  Age: 39 Year
  Sex: Female

DRUGS (2)
  1. TRILEPTAL [Suspect]
     Route: 048
  2. LEPONEX [Suspect]
     Route: 048

REACTIONS (2)
  - INTESTINAL HYPOMOTILITY [None]
  - SUBILEUS [None]
